FAERS Safety Report 7562496-6 (Version None)
Quarter: 2011Q2

REPORT INFORMATION
  Report Type: 
  Country: None (occurrence: None)
  Receive Date: 20110621
  Receipt Date: 20110621
  Transmission Date: 20111010
  Serious: Yes (Other)
  Sender: FDA-Public Use
  Company Number: None

PATIENT
  Age: 40 Year
  Sex: Female
  Weight: 70.3075 kg

DRUGS (1)
  1. SINGULAIR [Suspect]
     Indication: MULTIPLE ALLERGIES
     Dosage: 10MG 1XDAY PO
     Route: 048
     Dates: start: 20110613, end: 20110620

REACTIONS (17)
  - HYPERSENSITIVITY [None]
  - THINKING ABNORMAL [None]
  - DISTURBANCE IN ATTENTION [None]
  - MALAISE [None]
  - MUSCLE SPASMS [None]
  - ANGER [None]
  - HEADACHE [None]
  - INSOMNIA [None]
  - DIARRHOEA [None]
  - ABDOMINAL DISCOMFORT [None]
  - ARTHRALGIA [None]
  - FEELING ABNORMAL [None]
  - DEPRESSION [None]
  - LETHARGY [None]
  - URINARY INCONTINENCE [None]
  - AGITATION [None]
  - NEGATIVE THOUGHTS [None]
